FAERS Safety Report 4458948-8 (Version None)
Quarter: 2004Q3

REPORT INFORMATION
  Report Type: 
  Country: None (occurrence: None)
  Receive Date: 20040923
  Receipt Date: 20040923
  Transmission Date: 20050211
  Serious: No
  Sender: FDA-Public Use
  Company Number: None

PATIENT
  Age: 69 Year
  Sex: Female
  Weight: 50.3493 kg

DRUGS (11)
  1. GATIFLOXACIN [Suspect]
     Indication: SEPSIS
     Dosage: 200MG IV DAILY
     Route: 042
     Dates: start: 20040914, end: 20040917
  2. CARBIDOA/LEVODOPA [Concomitant]
  3. NEURONTIN [Concomitant]
  4. FOSAMAX [Concomitant]
  5. OSTEO BI-FLEX [Concomitant]
  6. VANCOMYCIN [Concomitant]
  7. METOPROLOL [Concomitant]
  8. DILTIAZEM [Concomitant]
  9. LOVENOX [Concomitant]
  10. TPN [Concomitant]
  11. LASIX [Concomitant]

REACTIONS (1)
  - HYPERGLYCAEMIA [None]
